FAERS Safety Report 17821224 (Version 2)
Quarter: 2020Q2

REPORT INFORMATION
  Report Type: Spontaneous
  Country: US (occurrence: US)
  Receive Date: 20200525
  Receipt Date: 20200623
  Transmission Date: 20200714
  Serious: No
  Sender: FDA-Public Use
  Company Number: US-JNJFOC-20200512899

PATIENT
  Age: 63 Year
  Sex: Female

DRUGS (7)
  1. FLECAINIDE [Concomitant]
     Active Substance: FLECAINIDE
     Indication: CARDIAC DISORDER
     Route: 065
  2. BUPROPION. [Concomitant]
     Active Substance: BUPROPION
     Indication: ANTIDEPRESSANT THERAPY
     Route: 065
  3. CO Q 10                            /00517201/ [Concomitant]
     Indication: PRODUCT USED FOR UNKNOWN INDICATION
     Route: 065
  4. MENS ROGAINE EXTRA STRENGTH [Suspect]
     Active Substance: MINOXIDIL
     Indication: ALOPECIA
     Route: 061
     Dates: start: 20200315, end: 20200501
  5. LIPITOR [Concomitant]
     Active Substance: ATORVASTATIN CALCIUM
     Indication: CARDIAC DISORDER
     Route: 065
  6. ASPRIN [Concomitant]
     Active Substance: ASPIRIN
     Indication: PRODUCT USED FOR UNKNOWN INDICATION
     Route: 065
  7. VITAMIN C [Concomitant]
     Active Substance: ASCORBIC ACID
     Indication: PRODUCT USED FOR UNKNOWN INDICATION
     Route: 065

REACTIONS (8)
  - Product use issue [Unknown]
  - Off label use [Unknown]
  - Application site exfoliation [Recovered/Resolved]
  - Product residue present [Recovered/Resolved]
  - Application site erythema [Recovered/Resolved]
  - Application site pain [Recovered/Resolved]
  - Application site pruritus [Recovered/Resolved]
  - Incorrect product administration duration [Unknown]

NARRATIVE: CASE EVENT DATE: 202003
